FAERS Safety Report 9406221 (Version 1)
Quarter: 2013Q3

REPORT INFORMATION
  Report Type: Spontaneous
  Country: FR (occurrence: FR)
  Receive Date: 20130717
  Receipt Date: 20130717
  Transmission Date: 20140515
  Serious: Yes (Other)
  Sender: FDA-Public Use
  Company Number: FR-PFIZER INC-2013175998

PATIENT
  Age: 29 Year
  Sex: Female

DRUGS (2)
  1. ARTOTEC [Suspect]
     Indication: MYALGIA
     Dosage: 0.5 DF, SINGLE
     Route: 048
     Dates: start: 20130529, end: 20130529
  2. LANSOPRAZOLE [Suspect]
     Indication: MYALGIA
     Dosage: 1 DF, 1X/DAY
     Route: 048
     Dates: start: 20130529, end: 20130529

REACTIONS (8)
  - Headache [Recovered/Resolved]
  - Myalgia [Recovered/Resolved]
  - Dyspnoea [Recovered/Resolved]
  - Dermatitis acneiform [Recovered/Resolved]
  - Pruritus [Recovered/Resolved]
  - Dyspepsia [Recovering/Resolving]
  - Somnolence [Recovering/Resolving]
  - Pain [Unknown]
